FAERS Safety Report 7900259 (Version 4)
Quarter: 2012Q4

REPORT INFORMATION
  Report Type: 
  Country: US (occurrence: US)
  Receive Date: 20110415
  Receipt Date: 20121114
  Transmission Date: 20130627
  Serious: Yes (Hospitalization, Other)
  Sender: FDA-Public Use
  Company Number: US-JNJFOC-20110402571

PATIENT
  Sex: Female
  Weight: 120.2 kg

DRUGS (7)
  1. DURAGESIC [Suspect]
     Indication: BACK PAIN
     Route: 062
  2. DURAGESIC [Suspect]
     Indication: BACK PAIN
     Route: 062
     Dates: start: 2003, end: 2011
  3. MYLAN FENTANYL TRANSDERMAL SYSTEM [Suspect]
     Indication: BACK PAIN
     Route: 062
     Dates: start: 2011
  4. DURAGESIC [Suspect]
     Indication: PRODUCT USED FOR UNKNOWN INDICATION
     Route: 062
     Dates: start: 2004
  5. TOPIRAMATE [Suspect]
     Indication: PRODUCT USED FOR UNKNOWN INDICATION
     Route: 048
  6. NEURONTIN [Concomitant]
     Indication: NEURALGIA
     Route: 048
  7. TOPAMAX [Concomitant]
     Indication: NEURALGIA
     Route: 048

REACTIONS (9)
  - Hiatus hernia [Recovered/Resolved]
  - Weight decreased [Not Recovered/Not Resolved]
  - Oesophageal disorder [Recovered/Resolved]
  - Choking [Recovered/Resolved]
  - Eye infection [Not Recovered/Not Resolved]
  - Pruritus [Not Recovered/Not Resolved]
  - Urticaria [Not Recovered/Not Resolved]
  - Fatigue [Not Recovered/Not Resolved]
  - Adverse event [Unknown]
